FAERS Safety Report 20664604 (Version 1)
Quarter: 2022Q2

REPORT INFORMATION
  Report Type: Spontaneous
  Country: CN (occurrence: CN)
  Receive Date: 20220401
  Receipt Date: 20220401
  Transmission Date: 20220721
  Serious: Yes (Other)
  Sender: FDA-Public Use
  Company Number: CN-PFIZER INC-202200475170

PATIENT
  Age: 4 Year
  Sex: Male
  Weight: 15 kg

DRUGS (1)
  1. METHOTREXATE [Suspect]
     Active Substance: METHOTREXATE
     Indication: Chemotherapy
     Dosage: 1400 MG, 1X/DAY
     Route: 041
     Dates: start: 20220314, end: 20220315

REACTIONS (12)
  - Myelosuppression [Unknown]
  - Neurotoxicity [Unknown]
  - Renal failure [Unknown]
  - Seizure [Recovering/Resolving]
  - Diarrhoea [Unknown]
  - Vomiting [Unknown]
  - Abdominal pain [Unknown]
  - Catarrh [Unknown]
  - Pain in extremity [Unknown]
  - Muscle rigidity [Unknown]
  - Dysphoria [Unknown]
  - Crying [Unknown]

NARRATIVE: CASE EVENT DATE: 20220322
